FAERS Safety Report 25479046 (Version 1)
Quarter: 2025Q2

REPORT INFORMATION
  Report Type: Spontaneous
  Country: IT (occurrence: IT)
  Receive Date: 20250625
  Receipt Date: 20250625
  Transmission Date: 20250717
  Serious: Yes (Other)
  Sender: MYLAN
  Company Number: IT-DOCGEN-2503806

PATIENT
  Age: 35 Year
  Sex: Female

DRUGS (24)
  1. SERTRALINE [Suspect]
     Active Substance: SERTRALINE HYDROCHLORIDE
     Indication: Antidepressant therapy
  2. SERTRALINE [Suspect]
     Active Substance: SERTRALINE HYDROCHLORIDE
     Route: 065
  3. SERTRALINE [Suspect]
     Active Substance: SERTRALINE HYDROCHLORIDE
     Route: 065
  4. SERTRALINE [Suspect]
     Active Substance: SERTRALINE HYDROCHLORIDE
  5. QUETIAPINE [Suspect]
     Active Substance: QUETIAPINE
     Indication: Antipsychotic therapy
  6. QUETIAPINE [Suspect]
     Active Substance: QUETIAPINE
     Route: 065
  7. QUETIAPINE [Suspect]
     Active Substance: QUETIAPINE
     Route: 065
  8. QUETIAPINE [Suspect]
     Active Substance: QUETIAPINE
  9. ZOLPIDEM [Suspect]
     Active Substance: ZOLPIDEM TARTRATE
     Indication: Hypnotherapy
  10. ZOLPIDEM [Suspect]
     Active Substance: ZOLPIDEM TARTRATE
     Route: 065
  11. ZOLPIDEM [Suspect]
     Active Substance: ZOLPIDEM TARTRATE
     Route: 065
  12. ZOLPIDEM [Suspect]
     Active Substance: ZOLPIDEM TARTRATE
  13. PREDNISONE [Suspect]
     Active Substance: PREDNISONE
     Indication: Product used for unknown indication
  14. PREDNISONE [Suspect]
     Active Substance: PREDNISONE
     Route: 065
  15. PREDNISONE [Suspect]
     Active Substance: PREDNISONE
     Route: 065
  16. PREDNISONE [Suspect]
     Active Substance: PREDNISONE
  17. FUROSEMIDE [Suspect]
     Active Substance: FUROSEMIDE
     Indication: Diuretic therapy
  18. FUROSEMIDE [Suspect]
     Active Substance: FUROSEMIDE
     Route: 042
  19. FUROSEMIDE [Suspect]
     Active Substance: FUROSEMIDE
     Route: 042
  20. FUROSEMIDE [Suspect]
     Active Substance: FUROSEMIDE
  21. ALBUMIN HUMAN [Suspect]
     Active Substance: ALBUMIN HUMAN
     Indication: Diuretic therapy
  22. ALBUMIN HUMAN [Suspect]
     Active Substance: ALBUMIN HUMAN
     Route: 065
  23. ALBUMIN HUMAN [Suspect]
     Active Substance: ALBUMIN HUMAN
     Route: 065
  24. ALBUMIN HUMAN [Suspect]
     Active Substance: ALBUMIN HUMAN

REACTIONS (5)
  - Pneumonitis [Unknown]
  - Treatment noncompliance [Unknown]
  - Drug ineffective [Unknown]
  - Fall [Unknown]
  - Osteopenia [Unknown]
